FAERS Safety Report 6703230-9 (Version None)
Quarter: 2010Q2

REPORT INFORMATION
  Report Type: 
  Country: None (occurrence: None)
  Receive Date: 20100430
  Receipt Date: 20100420
  Transmission Date: 20101027
  Serious: Yes (Hospitalization)
  Sender: FDA-Public Use
  Company Number: FR-ABBOTT-10P-056-0639712-00

PATIENT
  Sex: Female

DRUGS (7)
  1. LIPANTHYL [Suspect]
     Indication: DYSLIPIDAEMIA
     Route: 048
  2. MORPHINE [Suspect]
     Indication: PAIN
     Route: 048
     Dates: start: 20100122
  3. EXFORGE [Suspect]
     Indication: HYPERTENSION
     Route: 048
     Dates: start: 20090901, end: 20100126
  4. TAGAMET [Suspect]
     Indication: CIRRHOSIS ALCOHOLIC
     Route: 042
     Dates: start: 20100121, end: 20100121
  5. DIPRIVAN [Suspect]
     Indication: DRUG USE FOR UNKNOWN INDICATION
     Route: 042
     Dates: start: 20100121, end: 20100121
  6. DIAMICRON [Suspect]
     Indication: TYPE 2 DIABETES MELLITUS
     Route: 048
  7. EPHEDRINE [Suspect]
     Indication: DRUG USE FOR UNKNOWN INDICATION
     Route: 042
     Dates: start: 20100121, end: 20100121

REACTIONS (1)
  - HAEMOLYTIC ANAEMIA [None]
